FAERS Safety Report 4900274-4 (Version None)
Quarter: 2006Q1

REPORT INFORMATION
  Report Type: 
  Country: None (occurrence: None)
  Receive Date: 20060203
  Receipt Date: 20060125
  Transmission Date: 20060701
  Serious: Yes (Hospitalization)
  Sender: FDA-Public Use
  Company Number: ES-ROCHE-433477

PATIENT
  Age: 59 Year
  Sex: Female

DRUGS (2)
  1. MYCOPHENOLATE MOFETIL [Suspect]
     Indication: RENAL TRANSPLANT
     Route: 048
     Dates: start: 20051015
  2. FK506 [Suspect]
     Indication: RENAL TRANSPLANT
     Route: 048
     Dates: start: 20051015, end: 20060109

REACTIONS (1)
  - HAEMOLYTIC URAEMIC SYNDROME [None]
